APPROVED DRUG PRODUCT: MICAFUNGIN SODIUM
Active Ingredient: MICAFUNGIN SODIUM
Strength: EQ 100MG BASE/VIAL
Dosage Form/Route: INJECTABLE;INTRAVENOUS
Application: A219712 | Product #002 | TE Code: AP
Applicant: HISUN PHARMACEUTICAL (HANGZHOU) CO LTD
Approved: Jan 21, 2026 | RLD: No | RS: No | Type: RX